FAERS Safety Report 8226830-6 (Version None)
Quarter: 2012Q1

REPORT INFORMATION
  Report Type: 
  Country: None (occurrence: None)
  Receive Date: 20120322
  Receipt Date: 20120314
  Transmission Date: 20120608
  Serious: Yes (Hospitalization)
  Sender: FDA-Public Use
  Company Number: US-BAYER-2011-052215

PATIENT
  Age: 28 Year
  Sex: Female
  Weight: 107.94 kg

DRUGS (2)
  1. SPIRONOLACTONE [Concomitant]
     Dosage: UNK
     Dates: start: 20070101
  2. YAZ [Suspect]
     Dosage: UNK
     Dates: start: 20070101, end: 20090701

REACTIONS (12)
  - CHOLECYSTECTOMY [None]
  - PAIN [None]
  - CONSTIPATION [None]
  - DIARRHOEA [None]
  - ANXIETY [None]
  - INJURY [None]
  - DYSPEPSIA [None]
  - ABDOMINAL DISTENSION [None]
  - EMOTIONAL DISTRESS [None]
  - SCAR [None]
  - FLATULENCE [None]
  - DEPRESSION [None]
